FAERS Safety Report 5677411-X (Version None)
Quarter: 2008Q1

REPORT INFORMATION
  Report Type: 
  Country: None (occurrence: None)
  Receive Date: 20080321
  Receipt Date: 20080321
  Transmission Date: 20080703
  Serious: Yes (Other)
  Sender: FDA-Public Use
  Company Number: None

PATIENT
  Age: 55 Year
  Sex: Female
  Weight: 330 kg

DRUGS (3)
  1. PROPOFOL [Suspect]
     Indication: ABDOMINAL PAIN
     Dosage: 200MG ONE DOSE IV
     Route: 042
     Dates: start: 20080318, end: 20080318
  2. VERSED [Suspect]
     Indication: COLONOSCOPY
     Dosage: 3MG TWO DOSES IONTOPHORESIS
     Route: 044
     Dates: start: 20080318, end: 20080318
  3. FENTANYL [Concomitant]

REACTIONS (4)
  - CHILLS [None]
  - OXYGEN SATURATION DECREASED [None]
  - PRODUCTIVE COUGH [None]
  - PYREXIA [None]
